FAERS Safety Report 4840478-2 (Version None)
Quarter: 2005Q4

REPORT INFORMATION
  Report Type: 
  Country: None (occurrence: None)
  Receive Date: 20051130
  Receipt Date: 20050801
  Transmission Date: 20060501
  Serious: No
  Sender: FDA-Public Use
  Company Number: US-BRISTOL-MYERS SQUIBB COMPANY-13058623

PATIENT
  Age: 63 Year
  Sex: Male

DRUGS (7)
  1. ERBITUX [Suspect]
     Indication: TONGUE NEOPLASM MALIGNANT STAGE UNSPECIFIED
     Dates: start: 20050221
  2. TAXOL [Concomitant]
     Indication: TONGUE NEOPLASM MALIGNANT STAGE UNSPECIFIED
  3. CARBOPLATIN [Concomitant]
  4. RADIATION THERAPY [Concomitant]
  5. ZOCOR [Concomitant]
  6. REMERON [Concomitant]
  7. PLETAL [Concomitant]

REACTIONS (2)
  - PURULENT DISCHARGE [None]
  - SKIN EXFOLIATION [None]
